FAERS Safety Report 16773742 (Version 3)
Quarter: 2019Q4

REPORT INFORMATION
  Report Type: Spontaneous
  Country: US (occurrence: US)
  Receive Date: 20190904
  Receipt Date: 20191105
  Transmission Date: 20200122
  Serious: No
  Sender: FDA-Public Use
  Company Number: US-009507513-1908USA010804

PATIENT
  Age: 33 Year
  Sex: Female
  Weight: 90.25 kg

DRUGS (3)
  1. NEXPLANON [Suspect]
     Active Substance: ETONOGESTREL
     Dosage: ONE ROD, 68 MG, EVERY 3 YEARS
     Route: 059
     Dates: start: 20190618
  2. METOPROLOL. [Concomitant]
     Active Substance: METOPROLOL
  3. NEXPLANON [Suspect]
     Active Substance: ETONOGESTREL
     Indication: ENDOMETRIOSIS
     Dosage: ONE ROD, 68MG, FOR 4 YEARS
     Route: 059

REACTIONS (7)
  - Implant site paraesthesia [Not Recovered/Not Resolved]
  - Complication of device removal [Recovered/Resolved]
  - Incorrect product administration duration [Unknown]
  - Product use in unapproved indication [Unknown]
  - Implant site pain [Not Recovered/Not Resolved]
  - Scar [Not Recovered/Not Resolved]
  - Contusion [Recovered/Resolved]

NARRATIVE: CASE EVENT DATE: 2019
